FAERS Safety Report 8115146-4 (Version None)
Quarter: 2012Q1

REPORT INFORMATION
  Report Type: 
  Country: None (occurrence: None)
  Receive Date: 20120206
  Receipt Date: 20120203
  Transmission Date: 20120608
  Serious: No
  Sender: FDA-Public Use
  Company Number: US-BAYER-2012-011196

PATIENT
  Sex: Female

DRUGS (2)
  1. MIRENA [Suspect]
     Dosage: 20 MCG/24HR, CONT
     Dates: start: 20100901, end: 20111201
  2. MIRENA [Suspect]
     Dosage: 20 MCG/24HR, CONT
     Dates: start: 20100817, end: 20100901

REACTIONS (4)
  - ENDOMETRIOSIS [None]
  - ABDOMINAL PAIN [None]
  - DEVICE EXPULSION [None]
  - OVARIAN CYST [None]
